FAERS Safety Report 9156226 (Version 1)
Quarter: 2013Q1

REPORT INFORMATION
  Report Type: Spontaneous
  Country: JP (occurrence: JP)
  Receive Date: 20130311
  Receipt Date: 20130311
  Transmission Date: 20140127
  Serious: Yes (Other)
  Sender: FDA-Public Use
  Company Number: JP-B.I. PHARMACEUTICALS,INC./RIDGEFIELD-2013-BI-06416YA

PATIENT
  Age: 73 Year
  Sex: Male

DRUGS (10)
  1. HARNAL [Suspect]
     Route: 048
  2. FLAVITAN [Concomitant]
  3. NORVASC (AMLODIPINE BESILATE) [Concomitant]
  4. FEBURIC (FEBUXOSTAT) [Concomitant]
  5. PREMINENT (HYDROCHLOROTHIAZIDE, LOSARTAN POTASSIUM) [Concomitant]
  6. SOLANAX (ALPRAZOLAM) [Concomitant]
  7. MERISLON (BETHAHISTINE MESILATE) [Concomitant]
  8. PLAVIX (CLOPIDOGREL BISULFATE) [Concomitant]
  9. EPINAZION (EPINASTINE HYDROCHLORIDE) [Concomitant]
  10. PYDOXAL (PYRIDOXAL PHOSPHATE) [Concomitant]

REACTIONS (1)
  - Prostatic specific antigen increased [Unknown]
